FAERS Safety Report 7325223-3 (Version None)
Quarter: 2011Q1

REPORT INFORMATION
  Report Type: 
  Country: None (occurrence: None)
  Receive Date: 20110302
  Receipt Date: 20110222
  Transmission Date: 20110831
  Serious: Yes (Other)
  Sender: FDA-Public Use
  Company Number: US-PFIZER INC-2011039314

PATIENT
  Sex: Male

DRUGS (2)
  1. TEGRETOL [Suspect]
     Dosage: UNK
  2. VIAGRA [Suspect]
     Indication: LIBIDO DECREASED
     Dosage: UNK

REACTIONS (2)
  - LIBIDO DECREASED [None]
  - CONVULSION [None]
